FAERS Safety Report 21585199 (Version 1)
Quarter: 2022Q4

REPORT INFORMATION
  Report Type: Spontaneous
  Country: US (occurrence: US)
  Receive Date: 20221111
  Receipt Date: 20221111
  Transmission Date: 20230113
  Serious: No
  Sender: FDA-Public Use
  Company Number: US-NOVOPROD-939942

PATIENT
  Sex: Female

DRUGS (1)
  1. TRESIBA [Suspect]
     Active Substance: INSULIN DEGLUDEC
     Indication: Product used for unknown indication
     Dosage: UNK
     Route: 058

REACTIONS (7)
  - Fibromyalgia [Unknown]
  - Condition aggravated [Unknown]
  - Idiopathic environmental intolerance [Unknown]
  - Chest pain [Unknown]
  - Illness [Unknown]
  - Fall [Recovered/Resolved]
  - Blood glucose increased [Unknown]
